FAERS Safety Report 5985721-1 (Version None)
Quarter: 2008Q4

REPORT INFORMATION
  Report Type: 
  Country: None (occurrence: None)
  Receive Date: 20081208
  Receipt Date: 20080328
  Transmission Date: 20090506
  Serious: No
  Sender: FDA-Public Use
  Company Number: US-AMGEN-KDL271802

PATIENT
  Sex: Female

DRUGS (2)
  1. ENBREL [Suspect]
     Indication: RHEUMATOID ARTHRITIS
     Route: 058
     Dates: start: 20070331
  2. ARAVA [Concomitant]
     Route: 048
     Dates: start: 20080314

REACTIONS (3)
  - FALL [None]
  - HAEMATOMA [None]
  - WOUND SECRETION [None]
